FAERS Safety Report 5325376-2 (Version None)
Quarter: 2007Q2

REPORT INFORMATION
  Report Type: 
  Country: None (occurrence: None)
  Receive Date: 20070509
  Receipt Date: 20070423
  Transmission Date: 20071010
  Serious: Yes (Other)
  Sender: FDA-Public Use
  Company Number: 2007RR-05048

PATIENT
  Age: 28 Year
  Sex: Female

DRUGS (7)
  1. PAROXETINE [Suspect]
     Indication: DRUG USE FOR UNKNOWN INDICATION
     Dosage: 30 MG, QD, 20 MG, QD, 40 MG, QD
     Dates: start: 19970902, end: 20010101
  2. PAROXETINE [Suspect]
     Indication: DRUG USE FOR UNKNOWN INDICATION
     Dosage: 30 MG, QD, 20 MG, QD, 40 MG, QD
     Dates: start: 19970902
  3. PAROXETINE [Suspect]
     Indication: DRUG USE FOR UNKNOWN INDICATION
     Dosage: 30 MG, QD, 20 MG, QD, 40 MG, QD
     Dates: start: 20000907
  4. IBUPROFEN [Suspect]
     Dosage: ORAL
     Route: 048
  5. SERTRALINE [Concomitant]
  6. SULPIRIDE [Concomitant]
  7. SEROXAT [Concomitant]

REACTIONS (13)
  - ANXIETY [None]
  - CONDITION AGGRAVATED [None]
  - DEPRESSION [None]
  - DRUG INEFFECTIVE [None]
  - DRUG WITHDRAWAL SYNDROME [None]
  - DRY MOUTH [None]
  - FEELING ABNORMAL [None]
  - HYPERHIDROSIS [None]
  - INCORRECT DOSE ADMINISTERED [None]
  - OVERDOSE [None]
  - PRURITUS [None]
  - SUICIDAL BEHAVIOUR [None]
  - SUICIDAL IDEATION [None]
